FAERS Safety Report 10154809 (Version 1)
Quarter: 2014Q2

REPORT INFORMATION
  Report Type: Spontaneous
  Country: US (occurrence: None)
  Receive Date: 20140505
  Receipt Date: 20140505
  Transmission Date: 20141212
  Serious: Yes (Hospitalization)
  Sender: FDA-Public Use
  Company Number: None

PATIENT
  Age: 66 Year
  Sex: Female
  Weight: 57.88 kg

DRUGS (1)
  1. BEVACIZUMAB (RHUMAB VEGF) (704865) [Suspect]

REACTIONS (11)
  - Lethargy [None]
  - Asthenia [None]
  - Aphasia [None]
  - Abdominal pain [None]
  - Hyponatraemia [None]
  - Urinary tract infection [None]
  - Glioblastoma [None]
  - Adrenal adenoma [None]
  - Sinus bradycardia [None]
  - Confusional state [None]
  - Disease progression [None]
